FAERS Safety Report 9523047 (Version 1)
Quarter: 2013Q3

REPORT INFORMATION
  Report Type: Spontaneous
  Country: BR (occurrence: BR)
  Receive Date: 20130913
  Receipt Date: 20130913
  Transmission Date: 20140515
  Serious: Yes (Other)
  Sender: FDA-Public Use
  Company Number: CHNY2013BR001892

PATIENT
  Age: 49 Year
  Sex: Female
  Weight: 70 kg

DRUGS (5)
  1. AGASTEN [Suspect]
     Indication: ANAPHYLAXIS PROPHYLAXIS
     Dosage: 1 DF, QD
  2. SINGULAIR [Suspect]
     Indication: IMMUNE SYSTEM DISORDER
     Dosage: 1 DF, QD
     Dates: start: 200106
  3. DILACORON [Concomitant]
     Indication: HEART RATE INCREASED
     Dosage: 80 MG, QD
     Route: 048
  4. RIVOTRIL [Concomitant]
     Indication: SLEEP DISORDER
     Dosage: 2 DF, QD
  5. RIVOTRIL [Concomitant]
     Indication: ANXIETY

REACTIONS (12)
  - Asthma [Not Recovered/Not Resolved]
  - Pre-eclampsia [Unknown]
  - Hypertension [Not Recovered/Not Resolved]
  - Blood cholesterol increased [Unknown]
  - Diabetes mellitus [Not Recovered/Not Resolved]
  - Face oedema [Recovered/Resolved]
  - Eye irritation [Recovered/Resolved]
  - Eye pruritus [Recovered/Resolved]
  - Rhinitis [Not Recovered/Not Resolved]
  - Nasal discomfort [Recovering/Resolving]
  - Maternal exposure during pregnancy [Unknown]
  - Off label use [Unknown]
